FAERS Safety Report 6369435-4 (Version None)
Quarter: 2009Q3

REPORT INFORMATION
  Report Type: 
  Country: None (occurrence: None)
  Receive Date: 20090923
  Receipt Date: 20090914
  Transmission Date: 20100115
  Serious: Yes (Other)
  Sender: FDA-Public Use
  Company Number: US-BIOGENIDEC-2009BI015160

PATIENT
  Age: 48 Year
  Sex: Male

DRUGS (1)
  1. TYSABRI [Suspect]
     Indication: MULTIPLE SCLEROSIS
     Route: 042
     Dates: start: 20090325

REACTIONS (6)
  - HAIR GROWTH ABNORMAL [None]
  - MIGRAINE [None]
  - MIGRAINE WITH AURA [None]
  - MULTIPLE SCLEROSIS [None]
  - NAIL GROWTH ABNORMAL [None]
  - RETINAL ARTERY OCCLUSION [None]
